FAERS Safety Report 14693745 (Version 4)
Quarter: 2018Q2

REPORT INFORMATION
  Report Type: Spontaneous
  Country: US (occurrence: US)
  Receive Date: 20180329
  Receipt Date: 20180413
  Transmission Date: 20180711
  Serious: Yes (Other)
  Sender: FDA-Public Use
  Company Number: US-GLAXOSMITHKLINE-US2018052261

PATIENT
  Age: 71 Year
  Sex: Female

DRUGS (1)
  1. BREO ELLIPTA [Suspect]
     Active Substance: FLUTICASONE FUROATE\VILANTEROL TRIFENATATE
     Indication: DYSPNOEA
     Dosage: 1 PUFF(S), 1D
     Route: 055
     Dates: start: 20180324, end: 20180326

REACTIONS (15)
  - Drug ineffective [Recovered/Resolved]
  - Dysphonia [Unknown]
  - Cough [Unknown]
  - Headache [Recovered/Resolved]
  - Nervousness [Unknown]
  - Anxiety [Unknown]
  - Blood pressure increased [Recovered/Resolved]
  - Eye irritation [Unknown]
  - Dyspnoea [Unknown]
  - Drug intolerance [Unknown]
  - Cerebrovascular accident [Unknown]
  - Tremor [Unknown]
  - Ear disorder [Unknown]
  - Chest discomfort [Unknown]
  - Photophobia [Recovered/Resolved]

NARRATIVE: CASE EVENT DATE: 201803
